FAERS Safety Report 6415102-8 (Version None)
Quarter: 2009Q4

REPORT INFORMATION
  Report Type: 
  Country: None (occurrence: None)
  Receive Date: 20091026
  Receipt Date: 20091019
  Transmission Date: 20100525
  Serious: Yes (Other)
  Sender: FDA-Public Use
  Company Number: US-B.I. PHARMACEUTICALS,INC./RIDGEFIELD-2009-BP-12154BP

PATIENT
  Sex: Male

DRUGS (3)
  1. ZANTAC 75 [Suspect]
     Dosage: 150 MG
     Route: 048
     Dates: start: 20091005
  2. KLONOPIN [Concomitant]
     Indication: CONVULSION
     Dosage: 1.5 MG
     Dates: start: 20090201
  3. ZONEGRAN [Concomitant]
     Indication: CONVULSION
     Dosage: 300 MG
     Dates: start: 20090201

REACTIONS (1)
  - CONVULSION [None]
